FAERS Safety Report 8224444-5 (Version None)
Quarter: 2012Q1

REPORT INFORMATION
  Report Type: 
  Country: None (occurrence: None)
  Receive Date: 20120321
  Receipt Date: 20120315
  Transmission Date: 20120608
  Serious: Yes (Death, Life-Threatening)
  Sender: FDA-Public Use
  Company Number: ES-CELGENEUS-144-C5013-11083028

PATIENT
  Sex: Female
  Weight: 85.6 kg

DRUGS (8)
  1. LENALIDOMIDE [Suspect]
     Dosage: 25 MILLIGRAM
     Route: 048
     Dates: start: 20110818, end: 20110825
  2. ASPIRIN [Concomitant]
     Dosage: 300 MILLIGRAM
     Route: 048
     Dates: start: 20100922
  3. DEXAMETHASONE [Suspect]
     Indication: MULTIPLE MYELOMA
     Dosage: 40 MILLIGRAM
     Route: 065
     Dates: start: 20100714
  4. CANDESARTAN CILEXETIL [Concomitant]
     Indication: HYPERTENSION
     Dosage: 3 MILLIGRAM
     Route: 048
     Dates: start: 20080101
  5. DEXAMETHASONE [Suspect]
     Dosage: 40 MILLIGRAM
     Route: 065
     Dates: start: 20110818, end: 20110825
  6. LENALIDOMIDE [Suspect]
     Indication: MULTIPLE MYELOMA
     Dosage: 25 MILLIGRAM
     Route: 048
     Dates: start: 20100714
  7. METFORMIN HCL [Concomitant]
     Dosage: 2550 MILLIGRAM
     Route: 048
     Dates: start: 20050101
  8. REPAGLINIDE [Concomitant]
     Dosage: 6 MILLIGRAM
     Route: 048
     Dates: start: 20000101

REACTIONS (3)
  - BRONCHOPNEUMONIA [None]
  - LUNG SQUAMOUS CELL CARCINOMA STAGE UNSPECIFIED [None]
  - RESPIRATORY FAILURE [None]
